FAERS Safety Report 6330184-X (Version None)
Quarter: 2009Q3

REPORT INFORMATION
  Report Type: 
  Country: None (occurrence: None)
  Receive Date: 20090827
  Receipt Date: 20090817
  Transmission Date: 20100115
  Serious: Yes (Other)
  Sender: FDA-Public Use
  Company Number: US-WYE-H10626709

PATIENT
  Sex: Male

DRUGS (1)
  1. PRISTIQ [Suspect]
     Dosage: ONLY FOR A FEW WEEKS
     Dates: start: 20090101, end: 20090101

REACTIONS (1)
  - MENTAL DISORDER [None]
